FAERS Safety Report 7805045-7 (Version None)
Quarter: 2011Q4

REPORT INFORMATION
  Report Type: 
  Country: None (occurrence: None)
  Receive Date: 20111010
  Receipt Date: 20111005
  Transmission Date: 20120403
  Serious: Yes (Hospitalization)
  Sender: FDA-Public Use
  Company Number: US-GLAXOSMITHKLINE-A0948269A

PATIENT
  Sex: Female

DRUGS (7)
  1. HYDROCHLOROTHIAZIDE [Concomitant]
  2. AVANDIA [Suspect]
     Indication: DIABETES MELLITUS
     Dosage: 8MG PER DAY
     Route: 048
     Dates: start: 20010101, end: 20080101
  3. ATENOLOL [Concomitant]
  4. INSULIN [Concomitant]
  5. NORVASC [Concomitant]
  6. LISINOPRIL [Concomitant]
  7. GLYBURIDE [Concomitant]

REACTIONS (3)
  - MYOCARDIAL INFARCTION [None]
  - ACUTE CORONARY SYNDROME [None]
  - CARDIAC FAILURE CONGESTIVE [None]
